FAERS Safety Report 5988187-0 (Version None)
Quarter: 2008Q4

REPORT INFORMATION
  Report Type: 
  Country: None (occurrence: None)
  Receive Date: 20081204
  Receipt Date: 20081119
  Transmission Date: 20090506
  Serious: Yes (Hospitalization)
  Sender: FDA-Public Use
  Company Number: 1-16921996

PATIENT
  Age: 53 Year
  Sex: Male
  Weight: 100.0181 kg

DRUGS (18)
  1. BACTRIM [Suspect]
     Dosage: ORAL
     Route: 048
     Dates: start: 20080913
  2. CYCLOSPORINE [Suspect]
     Indication: IMMUNOSUPPRESSION
     Dosage: 250 MG TWICE DAILY, ORAL
     Route: 048
     Dates: start: 20080912
  3. MYCOPHENOLATE MOFETIL [Concomitant]
  4. PREDNISONE TAB [Concomitant]
  5. BASILIXIMAB [Concomitant]
  6. DUCUSATE SODIUM [Concomitant]
  7. ESOMEPRAZOLE MAGNESIUM [Concomitant]
  8. LISINOPRIL [Concomitant]
  9. AMLODIPINE [Concomitant]
  10. ORAL HYDRALAZINE [Concomitant]
  11. INTRAVENOUS HYDRALAZINE [Concomitant]
  12. ACETAMINOPHEN [Concomitant]
  13. METOPROLOL [Concomitant]
  14. ORAL NYSTATIN [Concomitant]
  15. VALGANCICLOVIR HCL [Concomitant]
  16. ORAL METHYLPREDNISOLONE [Concomitant]
  17. INTRAVENOUS METHYLPREDNISOLONE [Concomitant]
  18. FUROSEMIDE [Concomitant]

REACTIONS (5)
  - ABDOMINAL DISTENSION [None]
  - BLOOD CREATININE INCREASED [None]
  - CARDIAC FAILURE CONGESTIVE [None]
  - HYPERKALAEMIA [None]
  - PERINEPHRIC EFFUSION [None]
